FAERS Safety Report 9753148 (Version 1)
Quarter: 2013Q4

REPORT INFORMATION
  Report Type: Spontaneous
  Country: US (occurrence: US)
  Receive Date: 20131213
  Receipt Date: 20131213
  Transmission Date: 20140711
  Serious: No
  Sender: FDA-Public Use
  Company Number: US-GILEAD-2010-0026507

PATIENT
  Sex: Male
  Weight: 149.68 kg

DRUGS (13)
  1. LETAIRIS [Suspect]
     Indication: PULMONARY ARTERIAL HYPERTENSION
     Route: 048
     Dates: start: 20091126
  2. ATENOLOL [Concomitant]
  3. PREDNISONE [Concomitant]
  4. EXFORGE [Concomitant]
  5. GLUCOVANCE [Concomitant]
  6. BUMETANIDE [Concomitant]
  7. ADVAIR HFA [Concomitant]
  8. POTASSIUM CHLORIDE [Concomitant]
  9. HYDROCODONE [Concomitant]
  10. COMBIVENT INHALER [Concomitant]
  11. SPIRIVIA HANDIHALER [Concomitant]
  12. ANTIHISTAMINE [Concomitant]
  13. PLAVIX [Concomitant]

REACTIONS (1)
  - Therapy cessation [Unknown]
